FAERS Safety Report 4345384-8 (Version None)
Quarter: 2004Q2

REPORT INFORMATION
  Report Type: 
  Country: None (occurrence: None)
  Receive Date: 20040421
  Receipt Date: 20040410
  Transmission Date: 20050107
  Serious: Yes (Death, Other)
  Sender: FDA-Public Use
  Company Number: 2004024177

PATIENT
  Age: 13 Year
  Sex: Male

DRUGS (1)
  1. PIROXICAM [Suspect]
     Indication: JOINT INJURY
     Dosage: 80 MG DAILY

REACTIONS (5)
  - DEPRESSED LEVEL OF CONSCIOUSNESS [None]
  - HYPERSENSITIVITY [None]
  - PYREXIA [None]
  - RASH [None]
  - SEPSIS [None]
